FAERS Safety Report 25390544 (Version 1)
Quarter: 2025Q2

REPORT INFORMATION
  Report Type: Spontaneous
  Country: FR (occurrence: FR)
  Receive Date: 20250603
  Receipt Date: 20250603
  Transmission Date: 20250716
  Serious: Yes (Other)
  Sender: TEVA
  Company Number: None

PATIENT
  Age: 65 Year
  Sex: Male
  Weight: 69.5 kg

DRUGS (2)
  1. DOXORUBICIN [Suspect]
     Active Substance: DOXORUBICIN
     Indication: Carcinoid tumour
     Dosage: 65 MG OVER 15 MIN EVERY 3 WEEKS, DOXORUBICIN HYDROCHLORIDE
     Route: 042
     Dates: start: 20220420, end: 20220810
  2. CYCLOPHOSPHAMIDE [Suspect]
     Active Substance: CYCLOPHOSPHAMIDE
     Indication: Carcinoid tumour
     Dosage: 1G OVER 1 HOUR EVERY 3 WEEKS
     Route: 042
     Dates: start: 20220420, end: 20220810

REACTIONS (1)
  - Ejection fraction decreased [Not Recovered/Not Resolved]

NARRATIVE: CASE EVENT DATE: 20250219
